FAERS Safety Report 6418673-0 (Version None)
Quarter: 2009Q4

REPORT INFORMATION
  Report Type: 
  Country: None (occurrence: None)
  Receive Date: 20091026
  Receipt Date: 20091013
  Transmission Date: 20100525
  Serious: Yes (Disabling, Other)
  Sender: FDA-Public Use
  Company Number: ADR39602009

PATIENT
  Age: 79 Year
  Sex: Female

DRUGS (7)
  1. SIMVASTATIN [Suspect]
     Indication: BLOOD CHOLESTEROL INCREASED
     Dosage: 20 MG ORAL
     Route: 048
     Dates: start: 20060404, end: 20080330
  2. AMLODIPINE [Concomitant]
  3. ATENOLOL [Concomitant]
  4. BUMETANIDE [Concomitant]
  5. GLIBENCLAMIDE [Concomitant]
  6. RAMIPRIL [Concomitant]
  7. ROSIGLITAZONE [Concomitant]

REACTIONS (2)
  - PLEURAL EFFUSION [None]
  - RESPIRATORY DISORDER [None]
